FAERS Safety Report 11504541 (Version 1)
Quarter: 2015Q3

REPORT INFORMATION
  Report Type: Spontaneous
  Country: US (occurrence: US)
  Receive Date: 20150915
  Receipt Date: 20150915
  Transmission Date: 20151125
  Serious: No
  Sender: FDA-Public Use
  Company Number: US-ROCHE-779649

PATIENT
  Sex: Male

DRUGS (2)
  1. PEGASYS [Suspect]
     Active Substance: PEGINTERFERON ALFA-2A
     Indication: HEPATITIS C
     Dosage: FORM: PRE-FILLED SYRINGE
     Route: 065
  2. COPEGUS [Suspect]
     Active Substance: RIBAVIRIN
     Indication: HEPATITIS C
     Dosage: DAILY DIVIDED DOSES
     Route: 065

REACTIONS (8)
  - Insomnia [Unknown]
  - Pruritus [Not Recovered/Not Resolved]
  - Blister [Unknown]
  - Fatigue [Unknown]
  - Contusion [Unknown]
  - Diarrhoea [Unknown]
  - Decreased appetite [Unknown]
  - Feeling of body temperature change [Unknown]
